FAERS Safety Report 6361093-8 (Version None)
Quarter: 2009Q3

REPORT INFORMATION
  Report Type: 
  Country: None (occurrence: None)
  Receive Date: 20090916
  Receipt Date: 20090916
  Transmission Date: 20100115
  Serious: Yes (Life-Threatening, Hospitalization, Other)
  Sender: FDA-Public Use
  Company Number: None

PATIENT
  Sex: Female
  Weight: 67.586 kg

DRUGS (1)
  1. ALLI [Suspect]
     Indication: WEIGHT CONTROL
     Dosage: 1 PILL 60MG 3 A DAY
     Dates: start: 20050101, end: 20090101

REACTIONS (5)
  - APPARENT DEATH [None]
  - FLATULENCE [None]
  - HEART RATE INCREASED [None]
  - UNEVALUABLE EVENT [None]
  - WEIGHT DECREASED [None]
